FAERS Safety Report 20383611 (Version 2)
Quarter: 2022Q1

REPORT INFORMATION
  Report Type: Report from Study
  Country: KR (occurrence: KR)
  Receive Date: 20220127
  Receipt Date: 20220210
  Transmission Date: 20220423
  Serious: Yes (Other)
  Sender: FDA-Public Use
  Company Number: KR-TEVA-2022-KR-2000986

PATIENT
  Age: 36 Year
  Sex: Male

DRUGS (12)
  1. ETOPOSIDE [Suspect]
     Active Substance: ETOPOSIDE
     Indication: Testicular germ cell tumour mixed
     Route: 065
  2. ETOPOSIDE [Suspect]
     Active Substance: ETOPOSIDE
     Indication: Testicular germ cell cancer metastatic
  3. VINBLASTINE [Suspect]
     Active Substance: VINBLASTINE
     Indication: Testicular germ cell tumour mixed
     Route: 065
  4. VINBLASTINE [Suspect]
     Active Substance: VINBLASTINE
     Indication: Testicular germ cell cancer metastatic
  5. CISPLATIN [Suspect]
     Active Substance: CISPLATIN
     Indication: Testicular germ cell tumour mixed
     Route: 065
  6. CISPLATIN [Suspect]
     Active Substance: CISPLATIN
     Indication: Testicular germ cell cancer metastatic
  7. VINCRISTINE [Suspect]
     Active Substance: VINCRISTINE
     Indication: Testicular germ cell tumour mixed
     Route: 065
  8. VINCRISTINE [Suspect]
     Active Substance: VINCRISTINE
     Indication: Testicular germ cell cancer metastatic
  9. METHOTREXATE [Suspect]
     Active Substance: METHOTREXATE
     Indication: Testicular germ cell tumour mixed
     Route: 065
  10. METHOTREXATE [Suspect]
     Active Substance: METHOTREXATE
     Indication: Testicular germ cell cancer metastatic
  11. BLEOMYCIN [Suspect]
     Active Substance: BLEOMYCIN SULFATE
     Indication: Testicular germ cell tumour mixed
     Route: 065
  12. BLEOMYCIN [Suspect]
     Active Substance: BLEOMYCIN SULFATE
     Indication: Testicular germ cell cancer metastatic

REACTIONS (1)
  - Multiple-drug resistance [Unknown]
